FAERS Safety Report 9432834 (Version 1)
Quarter: 2013Q3

REPORT INFORMATION
  Report Type: Spontaneous
  Country: US (occurrence: US)
  Receive Date: 20130731
  Receipt Date: 20130731
  Transmission Date: 20140515
  Serious: Yes (Other)
  Sender: FDA-Public Use
  Company Number: US-GILEAD-2013-0079990

PATIENT
  Age: 4 Month
  Sex: Male

DRUGS (3)
  1. VISTIDE [Suspect]
     Indication: RESPIRATORY PAPILLOMA
     Dosage: UNK
     Route: 026
  2. VISTIDE [Suspect]
     Dosage: UNK
     Route: 055
  3. INTERFERON ALFA [Concomitant]
     Indication: RESPIRATORY PAPILLOMA

REACTIONS (1)
  - Drug ineffective for unapproved indication [Recovering/Resolving]
